FAERS Safety Report 11137186 (Version 1)
Quarter: 2015Q2

REPORT INFORMATION
  Report Type: Spontaneous
  Country: IN (occurrence: IN)
  Receive Date: 20150526
  Receipt Date: 20150526
  Transmission Date: 20150821
  Serious: Yes (Hospitalization)
  Sender: FDA-Public Use
  Company Number: IN-MYLANLABS-2015M1017081

PATIENT

DRUGS (2)
  1. TELMISARTAN. [Suspect]
     Active Substance: TELMISARTAN
     Indication: HYPERTENSION
     Route: 065
  2. METHOTREXATE [Concomitant]
     Active Substance: METHOTREXATE
     Indication: PUSTULAR PSORIASIS
     Route: 065

REACTIONS (2)
  - Condition aggravated [Recovered/Resolved]
  - Pustular psoriasis [Recovered/Resolved]
